FAERS Safety Report 11851669 (Version 1)
Quarter: 2015Q4

REPORT INFORMATION
  Report Type: Spontaneous
  Country: DE (occurrence: DE)
  Receive Date: 20151218
  Receipt Date: 20151218
  Transmission Date: 20160305
  Serious: Yes (Congenital Anomaly, Other)
  Sender: FDA-Public Use
  Company Number: GXKR2015DE005456

PATIENT

DRUGS (6)
  1. METOPROLOL [Suspect]
     Active Substance: METOPROLOL
     Indication: HYPERTENSION
     Dosage: 190 [MG/D (BIS 47.5) ]/ IN INCREASING DOSE. MATERNAL THERAPY WAS STOPPED 6 WEEKS AFTER DELIVERY
     Route: 064
     Dates: start: 20150429, end: 20150716
  2. METHYLDOPA. [Concomitant]
     Active Substance: METHYLDOPA
     Indication: HYPERTENSION
     Dosage: GW 19 TO 20
     Route: 064
  3. ASPIRIN. [Concomitant]
     Active Substance: ASPIRIN
     Indication: PROPHYLAXIS
     Dosage: 100 [MG/D ] (GW 13 TO 36)
     Route: 064
  4. NIFEDIPIN [Concomitant]
     Active Substance: NIFEDIPINE
     Indication: HYPERTENSION
     Dosage: 20 [MG/D ] (GW 35 TO 36)
     Route: 064
  5. DIHYDRALAZIN [Concomitant]
     Indication: HYPERTENSION
     Dosage: 100 [MG/D ] (GW 18 TO 36)
     Route: 064
  6. FOLSAEURE [Concomitant]
     Active Substance: FOLIC ACID
     Indication: PROPHYLAXIS OF NEURAL TUBE DEFECT
     Route: 064
     Dates: start: 20141201, end: 20150716

REACTIONS (3)
  - Hypoglycaemia neonatal [Recovered/Resolved]
  - Inguinal hernia [Recovered/Resolved with Sequelae]
  - Atrial septal defect [Recovering/Resolving]

NARRATIVE: CASE EVENT DATE: 20150716
